FAERS Safety Report 4917088-1 (Version None)
Quarter: 2006Q1

REPORT INFORMATION
  Report Type: 
  Country: None (occurrence: None)
  Receive Date: 20060221
  Receipt Date: 20060213
  Transmission Date: 20060701
  Serious: Yes (Other)
  Sender: FDA-Public Use
  Company Number: PHEH2006US02051

PATIENT

DRUGS (1)
  1. ZOMETA [Suspect]
     Dosage: UNSPECIFIED

REACTIONS (1)
  - OSTEONECROSIS [None]
